FAERS Safety Report 23264257 (Version 1)
Quarter: 2023Q4

REPORT INFORMATION
  Report Type: Spontaneous
  Country: CA (occurrence: CA)
  Receive Date: 20231205
  Receipt Date: 20231205
  Transmission Date: 20240109
  Serious: Yes (Hospitalization, Other)
  Sender: FDA-Public Use
  Company Number: CA-AstraZeneca-2020SE01115

PATIENT
  Age: 65 Year
  Sex: Male

DRUGS (6)
  1. ALVESCO [Suspect]
     Active Substance: CICLESONIDE
     Route: 055
  2. PREDNISONE [Suspect]
     Active Substance: PREDNISONE
  3. VENTOLIN [Suspect]
     Active Substance: ALBUTEROL SULFATE
  4. MOMETASONE FUROATE [Suspect]
     Active Substance: MOMETASONE FUROATE
  5. MEPOLIZUMAB [Suspect]
     Active Substance: MEPOLIZUMAB
     Indication: Asthma
     Route: 042
  6. GLYCOPYRROLATE\INDACATEROL MALEATE [Suspect]
     Active Substance: GLYCOPYRROLATE\INDACATEROL MALEATE

REACTIONS (2)
  - Drug dependence [Unknown]
  - Asthma [Recovering/Resolving]
